FAERS Safety Report 9422827 (Version 1)
Quarter: 2013Q3

REPORT INFORMATION
  Report Type: Spontaneous
  Country: US (occurrence: None)
  Receive Date: 20130724
  Receipt Date: 20130724
  Transmission Date: 20140515
  Serious: Yes (Other)
  Sender: FDA-Public Use
  Company Number: 2013P1012214

PATIENT
  Sex: Male

DRUGS (1)
  1. BUPROPION [Suspect]
     Route: 055

REACTIONS (5)
  - Euphoric mood [None]
  - Energy increased [None]
  - Mental status changes [None]
  - Drug abuse [None]
  - Incorrect route of drug administration [None]
